FAERS Safety Report 14881401 (Version 4)
Quarter: 2020Q2

REPORT INFORMATION
  Report Type: Spontaneous
  Country: US (occurrence: US)
  Receive Date: 20180511
  Receipt Date: 20200513
  Transmission Date: 20200713
  Serious: Yes (Other)
  Sender: FDA-Public Use
  Company Number: US-PFIZER INC-2018192587

PATIENT
  Age: 76 Year
  Sex: Female
  Weight: 100.7 kg

DRUGS (5)
  1. ASPIRIN. [Concomitant]
     Active Substance: ASPIRIN
     Dosage: UNK
  2. PREMARIN [Suspect]
     Active Substance: ESTROGENS, CONJUGATED
     Dosage: 0.5 DF, ALTERNATE DAY (EVERY OTHER DAY)
     Route: 048
  3. PREMARIN [Suspect]
     Active Substance: ESTROGENS, CONJUGATED
     Dosage: 0.625 MG, 1X/DAY
     Route: 048
     Dates: end: 20180401
  4. PREMARIN [Suspect]
     Active Substance: ESTROGENS, CONJUGATED
     Indication: OOPHORECTOMY
     Dosage: UNK
     Route: 048
     Dates: start: 1987
  5. PREMARIN [Suspect]
     Active Substance: ESTROGENS, CONJUGATED
     Dosage: UNK, ALTERNATE DAY (EVERY OTHER DAY)
     Route: 048
     Dates: start: 201801, end: 2018

REACTIONS (10)
  - Product dose omission [Unknown]
  - Hot flush [Unknown]
  - Dizziness [Not Recovered/Not Resolved]
  - Product use issue [Unknown]
  - Mental impairment [Unknown]
  - Depression [Not Recovered/Not Resolved]
  - Hypersomnia [Unknown]
  - Night sweats [Not Recovered/Not Resolved]
  - Fatigue [Not Recovered/Not Resolved]
  - Intentional product misuse [Unknown]

NARRATIVE: CASE EVENT DATE: 201801
